FAERS Safety Report 8519768-8 (Version None)
Quarter: 2012Q3

REPORT INFORMATION
  Report Type: 
  Country: None (occurrence: None)
  Receive Date: 20120719
  Receipt Date: 20120709
  Transmission Date: 20120928
  Serious: No
  Sender: FDA-Public Use
  Company Number: US-BIOGENIDEC-2012BI020003

PATIENT
  Sex: Female

DRUGS (1)
  1. TYSABRI [Suspect]
     Indication: MULTIPLE SCLEROSIS
     Route: 042
     Dates: start: 20120604

REACTIONS (10)
  - OROPHARYNGEAL PAIN [None]
  - SINUS DISORDER [None]
  - NAUSEA [None]
  - TREMOR [None]
  - RASH [None]
  - CHILLS [None]
  - DYSPNOEA [None]
  - MALAISE [None]
  - URTICARIA [None]
  - OEDEMA PERIPHERAL [None]
